FAERS Safety Report 6199500-6 (Version None)
Quarter: 2009Q2

REPORT INFORMATION
  Report Type: 
  Country: None (occurrence: None)
  Receive Date: 20090522
  Receipt Date: 20090512
  Transmission Date: 20091009
  Serious: Yes (Other)
  Sender: FDA-Public Use
  Company Number: US-AVENTIS-200518509US

PATIENT
  Sex: Female
  Weight: 70.45 kg

DRUGS (19)
  1. KETEK [Suspect]
     Indication: CHRONIC SINUSITIS
     Route: 048
     Dates: start: 20050729, end: 20051012
  2. MINOCYCLINE HCL [Suspect]
     Dosage: DOSE: UNK
  3. AZITHROMYCIN [Suspect]
     Dosage: DOSE: SEVERVAL PRESCRIPTIONS
  4. LIPITOR [Concomitant]
     Dosage: DOSE: UNKNOWN
  5. ZYRTEC [Concomitant]
     Dosage: DOSE: UNKNOWN
  6. ATROVENT [Concomitant]
     Dosage: DOSE: UNKNOWN
  7. ATENOLOL [Concomitant]
     Dosage: DOSE: UNKNOWN
  8. PREMARIN [Concomitant]
     Dosage: DOSE: UNKNOWN
  9. ASPIRIN [Concomitant]
     Dosage: DOSE: UNKNOWN
  10. PREDNISONE [Concomitant]
     Dosage: DOSE: UNKNOWN
  11. ADVAIR HFA [Concomitant]
     Dosage: DOSE: UNK
  12. MUSINEX [Concomitant]
     Dosage: DOSE: UNK
  13. NASONEX [Concomitant]
     Dosage: DOSE: UNK
  14. VENTOLIN [Concomitant]
     Dosage: DOSE: UNK
  15. BEXTRA                             /01401501/ [Concomitant]
     Dosage: DOSE: UNK
  16. GLUCOSAMINE + CHONDROITIN [Concomitant]
     Dosage: DOSE: UNK
  17. AMITRIPTLINE HYDROCHLORIDE TAB [Concomitant]
     Dosage: DOSE: UNK
  18. CAPSAICIN CREAM [Concomitant]
     Dosage: DOSE: UNK
  19. ANTIBIOTICS [Concomitant]
     Dosage: DOSE: UNK

REACTIONS (21)
  - AGEUSIA [None]
  - AMMONIA INCREASED [None]
  - APHONIA [None]
  - ASTHENIA [None]
  - CHROMATURIA [None]
  - COAGULOPATHY [None]
  - DYSPHAGIA [None]
  - FATIGUE [None]
  - GLOSSODYNIA [None]
  - HEPATIC ENCEPHALOPATHY [None]
  - HEPATIC FAILURE [None]
  - MALAISE [None]
  - OCULAR ICTERUS [None]
  - PRURITUS [None]
  - PYREXIA [None]
  - RESPIRATORY ALKALOSIS [None]
  - RESPIRATORY FAILURE [None]
  - THROMBOCYTOPENIA [None]
  - TRANSAMINASES INCREASED [None]
  - VERTIGO [None]
  - WHITE BLOOD CELL COUNT INCREASED [None]
